FAERS Safety Report 6278518-9 (Version None)
Quarter: 2009Q3

REPORT INFORMATION
  Report Type: 
  Country: None (occurrence: None)
  Receive Date: 20090722
  Receipt Date: 20080703
  Transmission Date: 20100115
  Serious: No
  Sender: FDA-Public Use
  Company Number: US-BAUSCH-2008BL001819

PATIENT
  Age: 80 Year
  Sex: Female

DRUGS (1)
  1. OPCON-A [Suspect]
     Indication: EYE ALLERGY
     Route: 047
     Dates: start: 20080401, end: 20080401

REACTIONS (2)
  - EYE DISCHARGE [None]
  - FOREIGN BODY SENSATION IN EYES [None]
